FAERS Safety Report 5088305-5 (Version None)
Quarter: 2006Q3

REPORT INFORMATION
  Report Type: 
  Country: None (occurrence: None)
  Receive Date: 20060821
  Receipt Date: 20060808
  Transmission Date: 20061208
  Serious: Yes (Hospitalization)
  Sender: FDA-Public Use
  Company Number: 235103K06USA

PATIENT
  Age: 33 Year
  Sex: Female

DRUGS (3)
  1. REBIF [Suspect]
     Indication: MULTIPLE SCLEROSIS
     Dosage: SEE IMAGE
     Route: 058
     Dates: start: 20050620, end: 20060601
  2. REBIF [Suspect]
     Indication: MULTIPLE SCLEROSIS
     Dosage: SEE IMAGE
     Route: 058
     Dates: start: 20060601
  3. ZANAFLEX [Concomitant]

REACTIONS (11)
  - BLOOD PRESSURE INCREASED [None]
  - BRADYCARDIA [None]
  - HEPATIC ENZYME INCREASED [None]
  - INJECTION SITE DISCOLOURATION [None]
  - INJECTION SITE ERYTHEMA [None]
  - INJECTION SITE REACTION [None]
  - INJECTION SITE SWELLING [None]
  - LIVER DISORDER [None]
  - MANIA [None]
  - MULTIPLE SCLEROSIS RELAPSE [None]
  - THYROID FUNCTION TEST ABNORMAL [None]
